FAERS Safety Report 4489181-1 (Version None)
Quarter: 2004Q4

REPORT INFORMATION
  Report Type: 
  Country: None (occurrence: None)
  Receive Date: 20041029
  Receipt Date: 20041026
  Transmission Date: 20050328
  Serious: Yes (Hospitalization)
  Sender: FDA-Public Use
  Company Number: US-JNJFOC-20040603355

PATIENT
  Sex: Female
  Weight: 63.5 kg

DRUGS (1)
  1. LEVAQUIN [Suspect]
     Indication: KIDNEY INFECTION
     Dates: start: 20040525, end: 20040528

REACTIONS (3)
  - BIPOLAR DISORDER [None]
  - PLEURAL EFFUSION [None]
  - PNEUMONIA MYCOPLASMAL [None]
